FAERS Safety Report 12326085 (Version 1)
Quarter: 2016Q2

REPORT INFORMATION
  Report Type: Spontaneous
  Country: US (occurrence: US)
  Receive Date: 20160503
  Receipt Date: 20160503
  Transmission Date: 20160815
  Serious: Yes (Hospitalization, Other)
  Sender: FDA-Public Use
  Company Number: US-BAXTER-2016BAX022091

PATIENT
  Sex: Male
  Weight: 99.79 kg

DRUGS (2)
  1. FLUCONAZOLE INJECTION, USP [Suspect]
     Active Substance: FLUCONAZOLE
     Indication: COCCIDIOIDOMYCOSIS
     Route: 065
  2. VFEND [Suspect]
     Active Substance: VORICONAZOLE
     Indication: COCCIDIOIDOMYCOSIS
     Dosage: 2 TABLETS A DAY
     Route: 065

REACTIONS (7)
  - Diabetes mellitus [Not Recovered/Not Resolved]
  - Lower extremity mass [Recovering/Resolving]
  - Procedural pain [Not Recovered/Not Resolved]
  - Pyrexia [Unknown]
  - Mass [Unknown]
  - Drug ineffective [Unknown]
  - Chemical poisoning [Not Recovered/Not Resolved]

NARRATIVE: CASE EVENT DATE: 1999
